FAERS Safety Report 15156415 (Version 2)
Quarter: 2018Q3

REPORT INFORMATION
  Report Type: Report from Study
  Country: US (occurrence: US)
  Receive Date: 20180717
  Receipt Date: 20180822
  Transmission Date: 20181010
  Serious: Yes (Death, Hospitalization)
  Sender: FDA-Public Use
  Company Number: US-ACTELION-A-NJ2017-164165

PATIENT
  Age: 44 Year
  Sex: Male
  Weight: 97.51 kg

DRUGS (5)
  1. VELETRI [Suspect]
     Active Substance: EPOPROSTENOL
     Dosage: 21 NG/KG, PER MIN
     Route: 042
  2. OPSUMIT [Concomitant]
     Active Substance: MACITENTAN
  3. AMLODIPINE [Concomitant]
     Active Substance: AMLODIPINE BESYLATE
  4. VELETRI [Suspect]
     Active Substance: EPOPROSTENOL
     Indication: PULMONARY HYPERTENSION
     Dosage: 17.5 NG/KG, PER MIN
     Route: 042
  5. LETAIRIS [Concomitant]
     Active Substance: AMBRISENTAN

REACTIONS (12)
  - Device dislocation [Unknown]
  - Fluid overload [Unknown]
  - Gout [Unknown]
  - Pain in extremity [Unknown]
  - Pruritus [Unknown]
  - Autoimmune disorder [Unknown]
  - Catheter site rash [Unknown]
  - Catheter site pain [Unknown]
  - Catheter site inflammation [Unknown]
  - Death [Fatal]
  - Chemotherapy [Unknown]
  - Catheter site discharge [Unknown]

NARRATIVE: CASE EVENT DATE: 20180813
